FAERS Safety Report 9650107 (Version 1)
Quarter: 2013Q4

REPORT INFORMATION
  Report Type: Spontaneous
  Country: US (occurrence: US)
  Receive Date: 20131028
  Receipt Date: 20131028
  Transmission Date: 20140711
  Serious: Yes (Other)
  Sender: FDA-Public Use
  Company Number: US-NAPPMUNDI-USA-2012-0097232

PATIENT
  Sex: Female

DRUGS (1)
  1. OXYCONTIN (NDA 22-272) [Suspect]
     Indication: DRUG DEPENDENCE
     Dosage: 580 MG, DAILY
     Route: 048

REACTIONS (2)
  - Drug dependence [Unknown]
  - Drug abuse [Unknown]
